FAERS Safety Report 9724509 (Version 2)
Quarter: 2014Q2

REPORT INFORMATION
  Report Type: Spontaneous
  Country: US (occurrence: US)
  Receive Date: 20131202
  Receipt Date: 20140501
  Transmission Date: 20141212
  Serious: No
  Sender: FDA-Public Use
  Company Number: US-AMGEN-USASP2013082419

PATIENT
  Age: 18 Year
  Sex: Female

DRUGS (1)
  1. ENBREL [Suspect]
     Indication: PSORIASIS
     Dosage: 50 MG, 2 TIMES/WK
     Route: 065
     Dates: start: 20131029

REACTIONS (9)
  - Erythema [Recovered/Resolved]
  - Rash [Recovered/Resolved]
  - Injury associated with device [Recovered/Resolved]
  - Drug administered at inappropriate site [Recovered/Resolved]
  - Headache [Not Recovered/Not Resolved]
  - Contusion [Recovered/Resolved]
  - Visual impairment [Not Recovered/Not Resolved]
  - Injection site rash [Recovered/Resolved]
  - Injection site swelling [Not Recovered/Not Resolved]
